FAERS Safety Report 5369965-8 (Version None)
Quarter: 2007Q2

REPORT INFORMATION
  Report Type: 
  Country: None (occurrence: None)
  Receive Date: 20070626
  Receipt Date: 20070615
  Transmission Date: 20071010
  Serious: Yes (Other)
  Sender: FDA-Public Use
  Company Number: PHEH2007US08976

PATIENT
  Age: 53 Year
  Sex: Female
  Weight: 47.619 kg

DRUGS (6)
  1. ESTRADERM [Suspect]
     Indication: MENOPAUSE
     Route: 062
     Dates: start: 19950531, end: 19950101
  2. PROVERA [Suspect]
     Indication: MENOPAUSE
     Dosage: 10 MG, UNK
     Route: 048
     Dates: start: 19940527, end: 19960226
  3. ORTHO-EST [Suspect]
     Indication: MENOPAUSE
     Dates: start: 19940527
  4. ESTRACE [Suspect]
     Indication: MENOPAUSE
     Dates: start: 19940624, end: 19960226
  5. PREMPRO [Suspect]
     Indication: MENOPAUSE
     Dates: start: 19960405, end: 19961011
  6. CLIMARA [Suspect]
     Indication: MENOPAUSE
     Dates: start: 19950622, end: 19950101

REACTIONS (14)
  - ANXIETY [None]
  - BREAST CANCER [None]
  - BREAST MICROCALCIFICATION [None]
  - CHONDROPATHY [None]
  - DEPRESSION [None]
  - JOINT MANIPULATION [None]
  - MALIGNANT BREAST LUMP REMOVAL [None]
  - NEURALGIA [None]
  - NEUROPATHY [None]
  - PARAESTHESIA [None]
  - PERIARTHRITIS [None]
  - RADIOTHERAPY [None]
  - RECTAL POLYP [None]
  - RECTAL POLYPECTOMY [None]
